FAERS Safety Report 14543556 (Version 1)
Quarter: 2018Q1

REPORT INFORMATION
  Report Type: Spontaneous
  Country: US (occurrence: US)
  Receive Date: 20180216
  Receipt Date: 20180216
  Transmission Date: 20180509
  Serious: No
  Sender: FDA-Public Use
  Company Number: US-TEVA-2018-US-850643

PATIENT
  Sex: Male
  Weight: 90.72 kg

DRUGS (5)
  1. CARBOBENZAPRINE [Concomitant]
     Indication: TRIGEMINAL NEURALGIA
     Dosage: TAKES TWO IN THE MORNING, ONE AT NOON, AND TWO IN THE EVENING
  2. ALLEGRA-D [Concomitant]
     Active Substance: FEXOFENADINE\PSEUDOEPHEDRINE
     Indication: HYPERSENSITIVITY
     Dosage: TAKES THIS OCCASIONALLY
  3. MELOXICAM. [Concomitant]
     Active Substance: MELOXICAM
     Indication: ARTHRITIS
     Dosage: 1 DOSAGE FORMS DAILY;
  4. BACLOFEN. [Suspect]
     Active Substance: BACLOFEN
     Route: 065
  5. LYRICA [Suspect]
     Active Substance: PREGABALIN
     Indication: FIBROMYALGIA
     Dosage: 50 MILLIGRAM DAILY;
     Route: 065
     Dates: start: 201711

REACTIONS (1)
  - Drug ineffective [Unknown]
